FAERS Safety Report 22625412 (Version 1)
Quarter: 2023Q2

REPORT INFORMATION
  Report Type: Spontaneous
  Country: JP (occurrence: JP)
  Receive Date: 20230621
  Receipt Date: 20230621
  Transmission Date: 20230721
  Serious: Yes (Other)
  Sender: FDA-Public Use
  Company Number: JP-SUN PHARMACEUTICAL INDUSTRIES LTD-2023RR-394708

PATIENT
  Age: 77 Year
  Sex: Male
  Weight: 72 kg

DRUGS (1)
  1. NOREPINEPHRINE [Suspect]
     Active Substance: NOREPINEPHRINE
     Indication: Hypotension
     Dosage: UP TO 0.1 MCG/KG/MIN
     Route: 040

REACTIONS (1)
  - Drug ineffective [Unknown]
